FAERS Safety Report 7629050-9 (Version None)
Quarter: 2011Q3

REPORT INFORMATION
  Report Type: 
  Country: None (occurrence: None)
  Receive Date: 20110722
  Receipt Date: 20110712
  Transmission Date: 20111222
  Serious: Yes (Hospitalization, Congenital Anomaly, Other)
  Sender: FDA-Public Use
  Company Number: US-PFIZER INC-2007095295

PATIENT
  Sex: Female
  Weight: 3 kg

DRUGS (2)
  1. ZOLOFT [Suspect]
     Indication: ANXIETY
     Dosage: 50 MG, UNK
     Route: 064
     Dates: start: 20040101
  2. ZOLOFT [Suspect]
     Indication: DEPRESSION
     Dosage: 100 MG, UNK
     Route: 064

REACTIONS (6)
  - VENTRICULAR SEPTAL DEFECT [None]
  - MATERNAL EXPOSURE DURING PREGNANCY [None]
  - ATRIAL SEPTAL DEFECT [None]
  - CARDIAC MURMUR [None]
  - EYE MOVEMENT DISORDER [None]
  - WEIGHT GAIN POOR [None]
